FAERS Safety Report 20698638 (Version 1)
Quarter: 2022Q2

REPORT INFORMATION
  Report Type: Report from Study
  Country: NL (occurrence: NL)
  Receive Date: 20220412
  Receipt Date: 20220412
  Transmission Date: 20220721
  Serious: Yes (Hospitalization)
  Sender: FDA-Public Use
  Company Number: NL-ABBVIE-20K-114-3659812-00

PATIENT
  Sex: Male

DRUGS (9)
  1. CARBIDOPA\LEVODOPA [Suspect]
     Active Substance: CARBIDOPA\LEVODOPA
     Indication: Parkinson^s disease
     Dosage: CD: 3.2 ML/HR
     Route: 050
     Dates: start: 20180703
  2. CARBIDOPA\LEVODOPA [Suspect]
     Active Substance: CARBIDOPA\LEVODOPA
     Dosage: MD: 9.0 ML, CD: 2.6 ML/H, ED: 2.0 ML; END:1.0ML; CND: 1.5ML
     Route: 050
  3. CARBIDOPA\LEVODOPA [Suspect]
     Active Substance: CARBIDOPA\LEVODOPA
     Dosage: MD: 9.0 ML, CD: 2.6 ML/H, ED: 2.0 ML; CND: 1.5ML
     Route: 050
  4. CARBIDOPA\LEVODOPA [Suspect]
     Active Substance: CARBIDOPA\LEVODOPA
     Dosage: CD: 3.2ML/H
     Route: 050
  5. CARBIDOPA\LEVODOPA [Suspect]
     Active Substance: CARBIDOPA\LEVODOPA
     Dosage: CONTINUOUS DOSE DECREASED BY 0.2 ML/H
     Route: 050
  6. CARBIDOPA\LEVODOPA [Suspect]
     Active Substance: CARBIDOPA\LEVODOPA
     Dosage: MD: 12 ML, CD: 2.3 ML/H, ED: 2 ML, END: 1 ML, CND: 1.4 ML/H
     Route: 050
  7. CARBIDOPA\LEVODOPA [Suspect]
     Active Substance: CARBIDOPA\LEVODOPA
     Dosage: MD: 12 ML, CD: 2.3 ML/H, ED: 2 ML, CND: 1.4 ML/H
     Route: 050
  8. ROPINIROLE [Concomitant]
     Active Substance: ROPINIROLE
     Indication: Product used for unknown indication
  9. EXELON [Concomitant]
     Active Substance: RIVASTIGMINE TARTRATE
     Indication: Product used for unknown indication

REACTIONS (17)
  - Hip surgery [Recovered/Resolved]
  - Embedded device [Recovered/Resolved]
  - Depressed mood [Not Recovered/Not Resolved]
  - Patient-device incompatibility [Unknown]
  - Impaired quality of life [Unknown]
  - Pain in extremity [Not Recovered/Not Resolved]
  - Gastrointestinal bacterial infection [Recovered/Resolved]
  - Speech disorder [Not Recovered/Not Resolved]
  - Device dislocation [Unknown]
  - Bradykinesia [Not Recovered/Not Resolved]
  - Hallucination, visual [Recovered/Resolved]
  - Dyskinesia [Not Recovered/Not Resolved]
  - On and off phenomenon [Not Recovered/Not Resolved]
  - Hyperkinesia [Unknown]
  - Freezing phenomenon [Not Recovered/Not Resolved]
  - Muscle rigidity [Not Recovered/Not Resolved]
  - Diarrhoea [Not Recovered/Not Resolved]

NARRATIVE: CASE EVENT DATE: 20200101
